FAERS Safety Report 16835375 (Version 1)
Quarter: 2019Q3

REPORT INFORMATION
  Report Type: Spontaneous
  Country: US (occurrence: US)
  Receive Date: 20190920
  Receipt Date: 20190920
  Transmission Date: 20191005
  Serious: No
  Sender: FDA-Public Use
  Company Number: US-AMARIN PHARMA, INC.-2018AMR000245

PATIENT
  Age: 75 Year
  Sex: Female
  Weight: 79.9 kg

DRUGS (2)
  1. VASCEPA [Suspect]
     Active Substance: ICOSAPENT ETHYL
     Indication: BLOOD TRIGLYCERIDES INCREASED
     Dates: start: 201809
  2. VASCEPA [Suspect]
     Active Substance: ICOSAPENT ETHYL
     Dates: start: 201710, end: 201710

REACTIONS (2)
  - Intentional underdose [Not Recovered/Not Resolved]
  - Arthralgia [Recovered/Resolved]

NARRATIVE: CASE EVENT DATE: 201710
